FAERS Safety Report 17955869 (Version 1)
Quarter: 2020Q2

REPORT INFORMATION
  Report Type: Spontaneous
  Country: US (occurrence: US)
  Receive Date: 20200626
  Receipt Date: 20200626
  Transmission Date: 20200714
  Serious: Yes (Disabling)
  Sender: FDA-Public Use
  Company Number: None

PATIENT
  Age: 56 Year
  Sex: Female
  Weight: 49.5 kg

DRUGS (3)
  1. HAND SANITIZER RINSE FREE [Suspect]
     Active Substance: ALCOHOL
     Indication: INFECTION PROPHYLAXIS
     Dosage: ?          QUANTITY:16.9 OUNCE(S);?
     Route: 061
     Dates: start: 20200616, end: 20200620
  2. DAILY VITAMIN [Concomitant]
     Active Substance: VITAMINS
  3. METROGEL [Concomitant]
     Active Substance: METRONIDAZOLE

REACTIONS (3)
  - Abdominal pain [None]
  - Lethargy [None]
  - Vertigo [None]

NARRATIVE: CASE EVENT DATE: 20200616
